FAERS Safety Report 26053041 (Version 1)
Quarter: 2025Q4

REPORT INFORMATION
  Report Type: Other
  Country: GB (occurrence: GB)
  Receive Date: 20251117
  Receipt Date: 20251117
  Transmission Date: 20260118
  Serious: Yes (Disabling, Other)
  Sender: MACLEODS
  Company Number: None

PATIENT

DRUGS (2)
  1. TAMSULOSIN [Suspect]
     Active Substance: TAMSULOSIN
     Indication: Lower urinary tract symptoms
     Dosage: 400 MICROGRAMS
     Dates: start: 20220107, end: 20250729
  2. FOLIC ACID [Concomitant]
     Active Substance: FOLIC ACID
     Indication: Product used for unknown indication
     Dosage: FOR 4 MONTHS
     Route: 065
     Dates: start: 20250515

REACTIONS (2)
  - Confusional state [Not Recovered/Not Resolved]
  - Dysarthria [Unknown]

NARRATIVE: CASE EVENT DATE: 20241107
